FAERS Safety Report 10658395 (Version 1)
Quarter: 2014Q4

REPORT INFORMATION
  Report Type: Spontaneous
  Country: US (occurrence: None)
  Receive Date: 20141205
  Receipt Date: 20141205
  Transmission Date: 20150529
  Serious: Yes (Other)
  Sender: FDA-Public Use
  Company Number: USA-2014094121

PATIENT
  Age: 82 Year
  Sex: Female

DRUGS (2)
  1. ACYCLOVIR. [Concomitant]
     Active Substance: ACYCLOVIR
  2. POMALYST [Suspect]
     Active Substance: POMALIDOMIDE
     Indication: PLASMA CELL MYELOMA
     Dosage: 2 MG, 1 IN 1 D, PO?
     Route: 048
     Dates: start: 201311

REACTIONS (3)
  - Abdominal pain upper [None]
  - Vomiting [None]
  - Cough [None]

NARRATIVE: CASE EVENT DATE: 20140719
